FAERS Safety Report 19984375 (Version 1)
Quarter: 2021Q4

REPORT INFORMATION
  Report Type: Spontaneous
  Country: US (occurrence: US)
  Receive Date: 20211022
  Receipt Date: 20211022
  Transmission Date: 20220303
  Serious: No
  Sender: FDA-Public Use
  Company Number: US-GLAXOSMITHKLINE-USCH2021072973

PATIENT

DRUGS (2)
  1. VOLTAREN ARTHRITIS PAIN [Suspect]
     Active Substance: DICLOFENAC SODIUM
     Indication: Product used for unknown indication
     Dosage: UNK
  2. IBUPROFEN [Suspect]
     Active Substance: IBUPROFEN
     Indication: Shoulder operation
     Dosage: UNK

REACTIONS (3)
  - Abdominal discomfort [Unknown]
  - Drug effective for unapproved indication [Unknown]
  - Product use in unapproved indication [Unknown]
